FAERS Safety Report 7981511-9 (Version None)
Quarter: 2011Q4

REPORT INFORMATION
  Report Type: 
  Country: None (occurrence: None)
  Receive Date: 20111215
  Receipt Date: 20111213
  Transmission Date: 20120403
  Serious: Yes (Hospitalization)
  Sender: FDA-Public Use
  Company Number: US-PFIZER INC-2011054760

PATIENT
  Sex: Female
  Weight: 84.807 kg

DRUGS (6)
  1. CHANTIX [Suspect]
     Indication: SMOKING CESSATION THERAPY
     Dosage: 0.5 MG, 1X/DAY
     Route: 048
  2. CHANTIX [Suspect]
     Dosage: UNK
     Route: 048
     Dates: start: 20111101
  3. DILANTIN [Concomitant]
     Indication: CONVULSION
     Dosage: 900 MG, DAILY AT NIGHT
     Route: 048
     Dates: start: 20110101
  4. CHANTIX [Suspect]
     Dosage: 0.5 MG, 1X/DAY
     Route: 048
     Dates: start: 20110302, end: 20110101
  5. CHANTIX [Suspect]
     Dosage: UNK
     Route: 048
     Dates: start: 20110101, end: 20111115
  6. CHANTIX [Suspect]
     Dosage: UNK
     Route: 048

REACTIONS (1)
  - BRONCHITIS [None]
